FAERS Safety Report 8517688-6 (Version None)
Quarter: 2012Q3

REPORT INFORMATION
  Report Type: 
  Country: None (occurrence: None)
  Receive Date: 20120712
  Receipt Date: 20120712
  Transmission Date: 20120928
  Serious: No
  Sender: FDA-Public Use
  Company Number: None

PATIENT
  Age: 58 Year
  Sex: Male

DRUGS (1)
  1. LAMICTAL [Suspect]
     Dosage: 200MG 1 1/2 BY MOUTH
     Route: 048

REACTIONS (2)
  - BURN OESOPHAGEAL [None]
  - DRUG LEVEL BELOW THERAPEUTIC [None]
